FAERS Safety Report 19498664 (Version 1)
Quarter: 2021Q3

REPORT INFORMATION
  Report Type: Report from Study
  Country: US (occurrence: US)
  Receive Date: 20210706
  Receipt Date: 20210706
  Transmission Date: 20211014
  Serious: No
  Sender: FDA-Public Use
  Company Number: US-B.I. PHARMACEUTICALS,INC./RIDGEFIELD-2020-BI-052131

PATIENT
  Age: 76 Year

DRUGS (1)
  1. OFEV [Suspect]
     Active Substance: NINTEDANIB
     Indication: IDIOPATHIC PULMONARY FIBROSIS
     Dosage: OFEV 100MG ORALLY TWICE DAILY
     Route: 048
     Dates: start: 20200804, end: 20200928

REACTIONS (5)
  - Renal impairment [Unknown]
  - Liver injury [Unknown]
  - Drug intolerance [Unknown]
  - Diabetes mellitus [Unknown]
  - Hepatic enzyme increased [Unknown]

NARRATIVE: CASE EVENT DATE: 202008
